FAERS Safety Report 7033889-0 (Version None)
Quarter: 2010Q4

REPORT INFORMATION
  Report Type: 
  Country: None (occurrence: None)
  Receive Date: 20101007
  Receipt Date: 20100928
  Transmission Date: 20110411
  Serious: Yes (Other)
  Sender: FDA-Public Use
  Company Number: US-AMGEN-QUU428189

PATIENT
  Sex: Female

DRUGS (1)
  1. NPLATE [Suspect]
     Indication: IDIOPATHIC THROMBOCYTOPENIC PURPURA
     Dates: start: 20100304, end: 20100504

REACTIONS (4)
  - MYELODYSPLASTIC SYNDROME [None]
  - MYELOFIBROSIS [None]
  - POLYCYTHAEMIA VERA [None]
  - THERAPEUTIC RESPONSE DECREASED [None]
